FAERS Safety Report 8877658 (Version 2)
Quarter: 2012Q4

REPORT INFORMATION
  Report Type: 
  Country: ES (occurrence: ES)
  Receive Date: 20121024
  Receipt Date: 20121106
  Transmission Date: 20130627
  Serious: No
  Sender: FDA-Public Use
  Company Number: ES-009507513-1210ESP008794

PATIENT
  Sex: Female

DRUGS (1)
  1. SYCREST [Suspect]
     Indication: SCHIZOAFFECTIVE DISORDER
     Dosage: 5 mg, qd
     Route: 060
     Dates: start: 20120620, end: 20120620

REACTIONS (4)
  - Hypoaesthesia oral [Recovered/Resolved]
  - Arthralgia [Recovered/Resolved]
  - Drug administration error [Recovered/Resolved]
  - Off label use [Recovered/Resolved]
